FAERS Safety Report 4685529-3 (Version None)
Quarter: 2005Q2

REPORT INFORMATION
  Report Type: 
  Country: None (occurrence: None)
  Receive Date: 20050608
  Receipt Date: 20050601
  Transmission Date: 20051028
  Serious: Yes (Hospitalization)
  Sender: FDA-Public Use
  Company Number: 2005UW08541

PATIENT
  Age: 79 Year
  Sex: Male

DRUGS (7)
  1. CRESTOR [Suspect]
     Route: 048
     Dates: start: 20041101
  2. CARDURA [Concomitant]
  3. AVAPRO [Concomitant]
  4. TILTARIUM ZR [Concomitant]
  5. ACETYLSALICYLIC ACID [Concomitant]
  6. FOLIC ACID [Concomitant]
  7. KEFLEX [Concomitant]
     Indication: INFECTION

REACTIONS (4)
  - CELLULITIS [None]
  - DIALYSIS [None]
  - RENAL FAILURE [None]
  - VASCULITIS [None]
